FAERS Safety Report 23546271 (Version 2)
Quarter: 2024Q1

REPORT INFORMATION
  Report Type: Spontaneous
  Country: CN (occurrence: CN)
  Receive Date: 20240220
  Receipt Date: 20240314
  Transmission Date: 20240410
  Serious: Yes (Hospitalization, Other)
  Sender: FDA-Public Use
  Company Number: CN-PRINSTON PHARMACEUTICAL INC.-2024PRN00071

PATIENT
  Sex: Male
  Weight: 2.23 kg

DRUGS (4)
  1. SACUBITRIL\VALSARTAN [Suspect]
     Active Substance: SACUBITRIL\VALSARTAN
     Dosage: MATERNAL DOSE OF 50 MG, TWICE DAILY FOR HYPERTENSION
     Route: 064
     Dates: start: 20230214, end: 20230222
  2. BUMETANIDE [Concomitant]
     Active Substance: BUMETANIDE
     Dosage: MATERNAL DOSE 1 MG, 1X/DAY
     Route: 064
     Dates: start: 20230214, end: 20230222
  3. CLOPIDOGREL BISULFATE [Concomitant]
     Active Substance: CLOPIDOGREL BISULFATE
     Dosage: MATERNAL DOSE 75 MG, 1X/DAY
     Route: 064
     Dates: start: 20230214, end: 20230222
  4. PITAVASTATIN CALCIUM [Concomitant]
     Active Substance: PITAVASTATIN CALCIUM
     Dosage: MATERNAL DOSE 2 MG, 1X/DAY
     Route: 064
     Dates: start: 20230214, end: 20230222

REACTIONS (5)
  - Hypoalbuminaemia [Recovered/Resolved]
  - Foetal exposure during pregnancy [Recovered/Resolved]
  - Respiratory acidosis [Recovered/Resolved]
  - Premature baby [Recovered/Resolved]
  - Acute kidney injury [Recovered/Resolved]

NARRATIVE: CASE EVENT DATE: 20230214
